FAERS Safety Report 16895965 (Version 7)
Quarter: 2021Q3

REPORT INFORMATION
  Report Type: Spontaneous
  Country: GB (occurrence: GB)
  Receive Date: 20191008
  Receipt Date: 20210924
  Transmission Date: 20211014
  Serious: Yes (Hospitalization, Disabling, Other)
  Sender: FDA-Public Use
  Company Number: GB-BIOGEN-2019BI00794089

PATIENT
  Age: 34 Year
  Sex: Female
  Weight: 55 kg

DRUGS (4)
  1. TYSABRI [Suspect]
     Active Substance: NATALIZUMAB
     Route: 042
     Dates: start: 2017, end: 20190726
  2. FILGRASTIM [Suspect]
     Active Substance: FILGRASTIM
     Indication: JC VIRUS GRANULE CELL NEURONOPATHY
     Route: 065
     Dates: start: 20190927, end: 20191001
  3. TYSABRI [Suspect]
     Active Substance: NATALIZUMAB
     Indication: MULTIPLE SCLEROSIS
     Dosage: INFUSED OVER 1 HOUR
     Route: 042
     Dates: start: 201202, end: 201511
  4. FILGRASTIM [Suspect]
     Active Substance: FILGRASTIM
     Route: 065
     Dates: start: 2020

REACTIONS (5)
  - Influenza like illness [Unknown]
  - Latent tuberculosis [Unknown]
  - Immune reconstitution inflammatory syndrome [Unknown]
  - JC virus granule cell neuronopathy [Recovered/Resolved]
  - Prescribed underdose [Recovered/Resolved]

NARRATIVE: CASE EVENT DATE: 2017
